FAERS Safety Report 7818671-6 (Version None)
Quarter: 2011Q4

REPORT INFORMATION
  Report Type: 
  Country: None (occurrence: None)
  Receive Date: 20111018
  Receipt Date: 20111010
  Transmission Date: 20120403
  Serious: Yes (Hospitalization)
  Sender: FDA-Public Use
  Company Number: US-BIOGENIDEC-2011BI039091

PATIENT
  Age: 63 Year
  Sex: Male

DRUGS (2)
  1. TYSABRI [Suspect]
     Indication: MULTIPLE SCLEROSIS
     Route: 042
     Dates: start: 20090727
  2. AVONEX [Concomitant]
     Indication: MULTIPLE SCLEROSIS
     Route: 030
     Dates: start: 19991009

REACTIONS (5)
  - STAPHYLOCOCCAL INFECTION [None]
  - LOSS OF CONSCIOUSNESS [None]
  - CONVULSION [None]
  - FALL [None]
  - HEAD INJURY [None]
